FAERS Safety Report 8575689-6 (Version None)
Quarter: 2012Q3

REPORT INFORMATION
  Report Type: 
  Country: None (occurrence: None)
  Receive Date: 20120807
  Receipt Date: 20120803
  Transmission Date: 20120928
  Serious: Yes (Hospitalization, Other)
  Sender: FDA-Public Use
  Company Number: PHEH2005US014208

PATIENT
  Sex: Female
  Weight: 71 kg

DRUGS (54)
  1. ARIMIDEX [Concomitant]
     Indication: BREAST CANCER
     Dosage: 1 MG, QD
  2. FLUID/ELECTROLYTE REPLACEMENT THERAPY [Concomitant]
     Indication: PROPHYLAXIS
  3. KYTRIL [Concomitant]
     Indication: PROPHYLAXIS
     Dosage: 1 MG, UNK
  4. BENADRYL [Concomitant]
     Indication: PROPHYLAXIS
     Dosage: 50 MG, UNK
  5. PENICILLIN VK [Concomitant]
  6. COMPAZINE [Concomitant]
  7. AMIFOSTINE [Concomitant]
  8. ETODOLAC [Concomitant]
     Dosage: 400 MG, Q8H
  9. AVELOX [Concomitant]
  10. NEURONTIN [Concomitant]
  11. CLARITIN [Concomitant]
  12. FOSAMAX [Suspect]
  13. TAXOL [Concomitant]
     Indication: BREAST CANCER METASTATIC
     Dates: start: 19970501
  14. TAXOTERE [Concomitant]
     Indication: OVARIAN CANCER
     Dates: start: 20030101, end: 20030101
  15. EPOGEN [Concomitant]
  16. NASACORT AQ [Concomitant]
  17. CELEBREX [Concomitant]
  18. ATIVAN [Concomitant]
  19. DARVOCET-N 50 [Concomitant]
  20. ATENOLOL [Concomitant]
  21. AREDIA [Suspect]
     Indication: BREAST CANCER METASTATIC
     Dosage: 90 MG, QMO
     Route: 042
     Dates: start: 19960603, end: 20020101
  22. NEUPOGEN [Concomitant]
     Indication: GRANULOCYTE COUNT DECREASED
     Dates: start: 19970801
  23. DECADRON PHOSPHATE [Concomitant]
     Dosage: 10 MG, UNK
  24. METHOTREXATE SODIUM [Concomitant]
     Indication: NEOPLASM MALIGNANT
  25. TORECAN [Concomitant]
     Dosage: 10 MG, EVERY 4-6 HOURS PRN
     Dates: start: 19970516
  26. MITOXANTRONE HYDROCHLORIDE [Concomitant]
  27. ALPRAZOLAM [Concomitant]
     Dosage: 0.5 MG, UNK
  28. ARMODAFINIL [Concomitant]
  29. AMBIEN [Concomitant]
  30. ADRIAMYCIN PFS [Concomitant]
     Indication: BREAST CANCER METASTATIC
     Dates: start: 19970501
  31. CHEMOTHERAPEUTICS,OTHER [Concomitant]
  32. CIMETIDINE [Concomitant]
  33. MS CONTIN [Concomitant]
  34. DILANTIN [Concomitant]
  35. PRIMADEX [Concomitant]
  36. IMITREX [Concomitant]
     Indication: MIGRAINE
  37. TAMOXIFEN CITRATE [Concomitant]
     Indication: BREAST CANCER
     Route: 048
     Dates: start: 19960501
  38. PARAPLATIN [Concomitant]
     Dosage: 100 MG, ONCE/SINGLE
     Dates: start: 20030724, end: 20030724
  39. FLUOROURACIL [Concomitant]
     Indication: NEOPLASM MALIGNANT
     Dosage: 1050 MG, UNK
  40. TAGAMET [Concomitant]
     Indication: PROPHYLAXIS
     Dosage: 300 MG, UNK
  41. MAXALT-MLT [Concomitant]
     Dosage: 10 MG, UNK
  42. TORADOL [Concomitant]
  43. DURAGESIC-100 [Concomitant]
  44. LOMOTIL [Concomitant]
  45. ZOMETA [Suspect]
     Dosage: 4 MG  Q3-4 WKS
     Route: 042
     Dates: start: 20020604, end: 20040915
  46. MEGACE [Concomitant]
     Indication: HOT FLUSH
  47. PARAPLATIN [Concomitant]
     Indication: OVARIAN CANCER
     Dosage: 200 MG EVERY WEEK FOR 3 WEEKS
     Dates: start: 20030501, end: 20030724
  48. MEGESTROL ACETATE [Concomitant]
  49. ULTRAM [Concomitant]
     Indication: DISCOMFORT
  50. PARAPLATIN [Concomitant]
     Dosage: 500 MG, ONCE/SINGLE
     Dates: start: 20030731, end: 20030731
  51. ANZEMET [Concomitant]
  52. FLAGYL [Concomitant]
  53. RESTORIL [Concomitant]
  54. LEVAQUIN [Concomitant]

REACTIONS (4)
  - CUTIS LAXA [None]
  - KNEE ARTHROPLASTY [None]
  - POST LAMINECTOMY SYNDROME [None]
  - EYELID PTOSIS [None]
